FAERS Safety Report 5712934-6 (Version None)
Quarter: 2008Q2

REPORT INFORMATION
  Report Type: 
  Country: None (occurrence: None)
  Receive Date: 20080422
  Receipt Date: 20080414
  Transmission Date: 20081010
  Serious: Yes (Other)
  Sender: FDA-Public Use
  Company Number: US-ASTRAZENECA-2008UW07063

PATIENT
  Sex: Female

DRUGS (6)
  1. SYMBICORT [Suspect]
     Indication: ASTHMA
     Dosage: 160/4.5 UG TWO PUFFS BID
     Route: 055
  2. PULMICORT FLEXHALER [Concomitant]
     Route: 055
  3. FORADIL [Concomitant]
  4. ALBUTEROL [Concomitant]
     Dosage: SPORADICALLY
  5. THEOPHYLLINE [Concomitant]
  6. SINGULAIR [Concomitant]

REACTIONS (1)
  - ASTHMA [None]
